FAERS Safety Report 8928811 (Version 2)
Quarter: 2013Q1

REPORT INFORMATION
  Report Type: Report from Study
  Country: US (occurrence: US)
  Receive Date: 20121128
  Receipt Date: 20130117
  Transmission Date: 20140127
  Serious: No
  Sender: FDA-Public Use
  Company Number: US-VERTEX PHARMACEUTICAL INC.-2012-025030

PATIENT
  Sex: Female

DRUGS (3)
  1. VX-950 (TELAPREVIR) [Suspect]
     Indication: HEPATITIS C
     Dosage: 750 MG, TID
     Route: 048
     Dates: start: 20121029
  2. RIBASPHERE [Suspect]
     Indication: HEPATITIS C
     Dosage: 600 MG AM + 400 MG PM
     Route: 048
     Dates: start: 20121029
  3. PEGASYS [Suspect]
     Indication: HEPATITIS C
     Dosage: 180 ?G, WEEKLY
     Route: 058
     Dates: start: 20121029

REACTIONS (7)
  - Influenza like illness [Unknown]
  - Tongue disorder [Unknown]
  - Rash generalised [Unknown]
  - Haemorrhoids [Unknown]
  - Painful defaecation [Unknown]
  - Dysgeusia [Unknown]
  - Pruritus [Unknown]
